FAERS Safety Report 10034950 (Version 1)
Quarter: 2014Q1

REPORT INFORMATION
  Report Type: Spontaneous
  Country: IT (occurrence: IT)
  Receive Date: 20140325
  Receipt Date: 20140325
  Transmission Date: 20141002
  Serious: Yes (Other)
  Sender: FDA-Public Use
  Company Number: IT-SA-2014SA033017

PATIENT
  Age: 92 Year
  Sex: Female

DRUGS (7)
  1. LASIX [Suspect]
     Indication: HYPERTENSION
     Route: 048
     Dates: start: 20140216, end: 20140221
  2. TICLOPIDINE [Concomitant]
     Route: 048
  3. LANSOPRAZOLE [Concomitant]
     Route: 048
  4. KETOTIFEN FUMARATE [Concomitant]
     Route: 048
  5. VALSARTAN [Concomitant]
     Route: 048
  6. GLICLAZIDE [Concomitant]
     Route: 048
  7. TACHIDOL [Concomitant]
     Route: 048

REACTIONS (10)
  - Tachyarrhythmia [Recovering/Resolving]
  - Palpitations [Unknown]
  - Cough [Recovering/Resolving]
  - Thrombosis [Recovering/Resolving]
  - Feeling cold [Recovering/Resolving]
  - Atrial fibrillation [Recovering/Resolving]
  - Deep vein thrombosis [Recovering/Resolving]
  - Pallor [Recovering/Resolving]
  - Cardiac failure [Recovering/Resolving]
  - Diarrhoea [Recovering/Resolving]
